FAERS Safety Report 8539589-X (Version None)
Quarter: 2012Q3

REPORT INFORMATION
  Report Type: 
  Country: None (occurrence: None)
  Receive Date: 20120726
  Receipt Date: 20120719
  Transmission Date: 20120928
  Serious: Yes (Hospitalization)
  Sender: FDA-Public Use
  Company Number: DK-ELI_LILLY_AND_COMPANY-DK201207006272

PATIENT
  Sex: Male
  Weight: 87 kg

DRUGS (4)
  1. EFFIENT [Suspect]
     Dosage: 10 MG, QD
     Dates: start: 20100521
  2. ASPIRIN [Concomitant]
     Dosage: UNK, OTHER
  3. EFFIENT [Suspect]
     Indication: ACUTE CORONARY SYNDROME
     Dosage: 60 MG, OTHER
     Dates: start: 20100520, end: 20100520
  4. ASPIRIN [Concomitant]
     Dosage: 100 MG, QD

REACTIONS (3)
  - MYOCARDIAL ISCHAEMIA [None]
  - ANGINA PECTORIS [None]
  - CORONARY ARTERY RESTENOSIS [None]
